FAERS Safety Report 4844531-9 (Version None)
Quarter: 2005Q4

REPORT INFORMATION
  Report Type: 
  Country: None (occurrence: None)
  Receive Date: 20051130
  Receipt Date: 20051130
  Transmission Date: 20060501
  Serious: Yes (Other)
  Sender: FDA-Public Use
  Company Number: None

PATIENT
  Sex: Female
  Weight: 104 kg

DRUGS (2)
  1. CYTARABINE [Suspect]
     Indication: ACUTE MYELOID LEUKAEMIA
     Dosage: 3 G/M2 IV OVER 3 HOURS Q 12H ON DAYS 1,3AND 5 (TOTAL 6 DOSES)
     Route: 042
     Dates: start: 20050924, end: 20051119
  2. CYTARABINE [Suspect]
     Indication: BONE MARROW DISORDER
     Dosage: 3 G/M2 IV OVER 3 HOURS Q 12H ON DAYS 1,3AND 5 (TOTAL 6 DOSES)
     Route: 042
     Dates: start: 20050924, end: 20051119

REACTIONS (6)
  - DIFFICULTY IN WALKING [None]
  - DRUG TOXICITY [None]
  - DYSARTHRIA [None]
  - FEBRILE NEUTROPENIA [None]
  - GAIT DISTURBANCE [None]
  - NEUROTOXICITY [None]
